FAERS Safety Report 4522532-8 (Version None)
Quarter: 2004Q4

REPORT INFORMATION
  Report Type: 
  Country: None (occurrence: None)
  Receive Date: 20041207
  Receipt Date: 20041122
  Transmission Date: 20050328
  Serious: No
  Sender: FDA-Public Use
  Company Number: 2004GB02816

PATIENT
  Sex: Male

DRUGS (8)
  1. CRESTOR [Suspect]
     Indication: BLOOD CHOLESTEROL INCREASED
     Dosage: 40 MG DAILY PO
     Route: 048
     Dates: start: 20031215
  2. BISOPROLOL FUMARATE [Concomitant]
  3. ALLOPURINOL [Concomitant]
  4. CLOPIDOGREL [Concomitant]
  5. EZETIMIBE [Concomitant]
  6. LANSOPRAZOLE [Concomitant]
  7. VALSARTAN [Concomitant]
  8. OMACOR [Concomitant]

REACTIONS (2)
  - LIVER ABSCESS [None]
  - PNEUMONIA [None]
